FAERS Safety Report 4379484-3 (Version None)
Quarter: 2004Q2

REPORT INFORMATION
  Report Type: 
  Country: None (occurrence: None)
  Receive Date: 20040601
  Receipt Date: 20040405
  Transmission Date: 20050107
  Serious: No
  Sender: FDA-Public Use
  Company Number: WAES 0404USA00406

PATIENT
  Age: 88 Year
  Sex: Female

DRUGS (7)
  1. ZETIA [Suspect]
     Indication: BLOOD CHOLESTEROL INCREASED
     Dosage: 10 MG/PO
     Route: 048
     Dates: start: 20040105
  2. EVISTA [Concomitant]
  3. LEVOXYL [Concomitant]
  4. NEXIUM [Concomitant]
  5. ATENOLOL [Concomitant]
  6. LORAZEPAM [Concomitant]
  7. NITROGLYCERIN [Concomitant]

REACTIONS (2)
  - PAIN IN EXTREMITY [None]
  - VOMITING [None]
